FAERS Safety Report 7363997-6 (Version None)
Quarter: 2011Q1

REPORT INFORMATION
  Report Type: 
  Country: None (occurrence: None)
  Receive Date: 20110321
  Receipt Date: 20110316
  Transmission Date: 20110831
  Serious: Yes (Death)
  Sender: FDA-Public Use
  Company Number: US-ACTELION-A-NJ2011-46156

PATIENT

DRUGS (5)
  1. AMBRISENTAN [Concomitant]
  2. VELETRI [Suspect]
     Indication: PULMONARY ARTERIAL HYPERTENSION
     Dosage: 16 NG/KG, PER MIN
     Route: 041
     Dates: start: 20110101, end: 20110311
  3. VENTAVIS [Concomitant]
     Indication: PULMONARY ARTERIAL HYPERTENSION
     Dosage: UNK
     Route: 055
     Dates: start: 20100501, end: 20110101
  4. LASIX [Concomitant]
  5. SILDENAFIL [Concomitant]

REACTIONS (1)
  - DEATH [None]
